FAERS Safety Report 21187873 (Version 1)
Quarter: 2022Q3

REPORT INFORMATION
  Report Type: Spontaneous
  Country: AU (occurrence: AU)
  Receive Date: 20220809
  Receipt Date: 20220809
  Transmission Date: 20221027
  Serious: Yes (Other)
  Sender: FDA-Public Use
  Company Number: AU-BAXTER-2022BAX016690

PATIENT
  Sex: Male

DRUGS (6)
  1. DOXORUBICIN [Suspect]
     Active Substance: DOXORUBICIN
     Indication: Central nervous system lymphoma
     Dosage: FIRST LINE R-CHOP CLINICAL REMISSION AND 2ND LINE HYPER-CVAD
     Route: 065
  2. CYCLOPHOSPHAMIDE [Suspect]
     Active Substance: CYCLOPHOSPHAMIDE
     Indication: Central nervous system lymphoma
     Dosage: FIRST LINE R-CHOP CLINICAL REMISSION AND 2ND LINE HYPER-CVAD
     Route: 065
  3. RITUXIMAB [Suspect]
     Active Substance: RITUXIMAB
     Indication: Central nervous system lymphoma
     Dosage: FIRST LINE R-CHOP CLINICAL REMISSION AND 2ND LINE HYPER-CVAD
     Route: 065
  4. VINCRISTINE [Suspect]
     Active Substance: VINCRISTINE
     Indication: Central nervous system lymphoma
     Dosage: FIRST LINE R-CHOP CLINICAL REMISSION AND 2ND LINE HYPER-CVAD
     Route: 065
  5. PREDNISONE [Suspect]
     Active Substance: PREDNISONE
     Indication: Central nervous system lymphoma
     Dosage: FIRST LINE R-CHOP
     Route: 065
  6. DEXAMETHASONE [Suspect]
     Active Substance: DEXAMETHASONE
     Indication: Central nervous system lymphoma
     Dosage: 2ND LINE HYPER-CVAD REGIMEN
     Route: 065

REACTIONS (2)
  - Central nervous system lymphoma [Unknown]
  - Disease progression [Unknown]
